FAERS Safety Report 8321632-4 (Version None)
Quarter: 2012Q2

REPORT INFORMATION
  Report Type: 
  Country: None (occurrence: None)
  Receive Date: 20120430
  Receipt Date: 20120423
  Transmission Date: 20120825
  Serious: Yes (Hospitalization)
  Sender: FDA-Public Use
  Company Number: BR-ASTRAZENECA-2012SE26774

PATIENT
  Age: 82 Year
  Sex: Female

DRUGS (4)
  1. RANITIDINE [Concomitant]
     Route: 048
  2. DIGESAN [Concomitant]
     Route: 048
  3. DIPYRONE TAB [Concomitant]
     Route: 048
  4. CRESTOR [Suspect]
     Indication: BLOOD CHOLESTEROL INCREASED
     Route: 048
     Dates: start: 20090101

REACTIONS (1)
  - AORTIC VALVE DISEASE [None]
